FAERS Safety Report 9369736 (Version 2)
Quarter: 2013Q3

REPORT INFORMATION
  Report Type: Spontaneous
  Country: DE (occurrence: DE)
  Receive Date: 20130626
  Receipt Date: 20130710
  Transmission Date: 20140515
  Serious: Yes (Other)
  Sender: FDA-Public Use
  Company Number: DE-BANPHARM-20131421

PATIENT
  Age: 78 Year
  Sex: Male
  Weight: 84 kg

DRUGS (11)
  1. IBUPROFEN UNKNOWN PRODUCT [Suspect]
     Indication: NEURALGIA
     Dosage: 800 MG, QD,
     Route: 065
     Dates: start: 2007, end: 2012
  2. CODIOVAN [Suspect]
     Indication: HYPERTENSION
     Dosage: 1 DF, QD,
     Route: 065
     Dates: start: 2003, end: 2013
  3. ALFUZOSIN [Suspect]
     Indication: PROSTATIC ADENOMA
     Dosage: 1 DF, QD,
     Route: 065
     Dates: start: 2003, end: 2013
  4. ALLOPURINOL [Suspect]
     Dosage: 1 DF, QD,
     Route: 065
     Dates: start: 2003, end: 2012
  5. ATENOLOL [Concomitant]
     Indication: HYPERTENSION
     Dosage: 1 DF, QD,
     Route: 065
     Dates: start: 2003, end: 2013
  6. METFORMIN [Concomitant]
     Indication: TYPE 2 DIABETES MELLITUS
     Dosage: 1 DF, QD,
     Route: 065
     Dates: start: 2003, end: 2013
  7. JANUMET [Concomitant]
     Indication: TYPE 2 DIABETES MELLITUS
     Dosage: 1 DF, QD,
     Route: 065
     Dates: start: 2003, end: 2013
  8. PALEXIA [Concomitant]
     Indication: NEURALGIA
     Dosage: 1 DF, QD,
     Route: 065
     Dates: start: 2009, end: 2012
  9. ARCOXIA [Concomitant]
     Indication: NEURALGIA
     Dosage: 1 DF, QD,
     Route: 065
     Dates: start: 2011, end: 2011
  10. DOXYCYCLINE [Concomitant]
     Indication: INFECTION
     Dosage: 1 DF, QD,
     Route: 065
     Dates: start: 2011, end: 2012
  11. TRAMADOL LONG [Concomitant]
     Indication: PROCEDURAL PAIN
     Dosage: 1DF, QD,
     Route: 065
     Dates: start: 2009, end: 2011

REACTIONS (3)
  - Anaemia [Unknown]
  - Pancytopenia [Unknown]
  - Renal impairment [Unknown]
